FAERS Safety Report 9205057 (Version 1)
Quarter: 2013Q2

REPORT INFORMATION
  Report Type: Spontaneous
  Country: US (occurrence: None)
  Receive Date: 20130401
  Receipt Date: 20130401
  Transmission Date: 20140414
  Serious: Yes (Life-Threatening)
  Sender: FDA-Public Use
  Company Number: None

PATIENT
  Age: 63 Year
  Sex: Male
  Weight: 76.66 kg

DRUGS (4)
  1. LISINOPRIL 10MG LUPIN [Suspect]
     Indication: HYPERTENSION
     Route: 048
     Dates: start: 20110801, end: 20130321
  2. PREVACID [Concomitant]
  3. XALATAN [Concomitant]
  4. TIMOLOL [Concomitant]

REACTIONS (1)
  - Hyponatraemia [None]
